FAERS Safety Report 6187815-7 (Version None)
Quarter: 2009Q2

REPORT INFORMATION
  Report Type: 
  Country: None (occurrence: None)
  Receive Date: 20090513
  Receipt Date: 20090504
  Transmission Date: 20091009
  Serious: Yes (Other)
  Sender: FDA-Public Use
  Company Number: US-ELI_LILLY_AND_COMPANY-US200905001044

PATIENT
  Sex: Female

DRUGS (9)
  1. BYETTA [Suspect]
     Dosage: 10 UG, 2/D
     Route: 065
     Dates: start: 20071201, end: 20090115
  2. METFORMIN HCL [Concomitant]
     Dosage: UNK, UNKNOWN
     Route: 065
  3. TRICOR [Concomitant]
     Dosage: UNK, UNKNOWN
     Route: 065
  4. NEXIUM [Concomitant]
     Dosage: UNK, UNKNOWN
     Route: 065
  5. CELEXA [Concomitant]
     Dosage: UNK, UNKNOWN
     Route: 065
  6. ALBUTEROL [Concomitant]
     Dosage: UNK, UNKNOWN
     Route: 065
  7. LISINOPRIL [Concomitant]
     Dosage: UNK, UNKNOWN
     Route: 065
  8. ESTROGEN NOS [Concomitant]
     Dosage: UNK, UNKNOWN
     Route: 065
  9. PROGESTERONE [Concomitant]
     Dosage: UNK, UNKNOWN
     Route: 065

REACTIONS (5)
  - ABDOMINAL PAIN [None]
  - BLOOD AMYLASE INCREASED [None]
  - LIPASE INCREASED [None]
  - NAUSEA [None]
  - PANCREATITIS [None]
